FAERS Safety Report 14278915 (Version 4)
Quarter: 2017Q4

REPORT INFORMATION
  Report Type: Report from Study
  Country: None (occurrence: US)
  Receive Date: 20171213
  Receipt Date: 20171226
  Transmission Date: 20180321
  Serious: Yes (Other)
  Sender: FDA-Public Use
  Company Number: US-ABBVIE-17K-163-2186529-00

PATIENT
  Age: 54 Year
  Sex: Female

DRUGS (2)
  1. HUMIRA [Suspect]
     Active Substance: ADALIMUMAB
     Indication: PSORIATIC ARTHROPATHY
     Route: 058
  2. HUMIRA [Suspect]
     Active Substance: ADALIMUMAB
     Indication: RHEUMATOID ARTHRITIS

REACTIONS (9)
  - Amnesia [Unknown]
  - Anger [Unknown]
  - Stress [Unknown]
  - Confusional state [Unknown]
  - Surgery [Unknown]
  - Meningioma benign [Not Recovered/Not Resolved]
  - Vocal cord paralysis [Unknown]
  - Dysgraphia [Unknown]
  - Post procedural complication [Unknown]

NARRATIVE: CASE EVENT DATE: 2017
